FAERS Safety Report 8821646 (Version 1)
Quarter: 2012Q4

REPORT INFORMATION
  Report Type: 
  Country: US (occurrence: US)
  Receive Date: 20121002
  Receipt Date: 20121002
  Transmission Date: 20130627
  Serious: No
  Sender: FDA-Public Use
  Company Number: US-VERTEX PHARMACEUTICAL INC.-2012-020689

PATIENT

DRUGS (4)
  1. INCIVEK [Suspect]
     Indication: HEPATITIS C
     Dosage: UNK
     Route: 048
  2. INCIVEK [Suspect]
     Dosage: UNK
  3. RIBAVIRIN [Suspect]
     Indication: HEPATITIS C
  4. PEGASYS [Suspect]
     Indication: HEPATITIS C

REACTIONS (4)
  - Gingival pain [Unknown]
  - Dysgeusia [Unknown]
  - Nausea [Unknown]
  - Vomiting [Unknown]
